FAERS Safety Report 25328951 (Version 2)
Quarter: 2025Q2

REPORT INFORMATION
  Report Type: Spontaneous
  Country: AZ (occurrence: AZ)
  Receive Date: 20250519
  Receipt Date: 20250530
  Transmission Date: 20250717
  Serious: Yes (Other)
  Sender: NOVO NORDISK
  Company Number: AZ-NOVOPROD-1244149

PATIENT
  Age: 26 Year
  Sex: Female
  Weight: 85 kg

DRUGS (1)
  1. TRESIBA [Suspect]
     Active Substance: INSULIN DEGLUDEC
     Indication: Gestational diabetes
     Dosage: 10 IU, QD

REACTIONS (4)
  - Urinary tract obstruction [Unknown]
  - Pre-eclampsia [Unknown]
  - Eclampsia [Unknown]
  - Maternal exposure during pregnancy [Recovered/Resolved]
